FAERS Safety Report 6734986-7 (Version None)
Quarter: 2010Q2

REPORT INFORMATION
  Report Type: 
  Country: None (occurrence: None)
  Receive Date: 20100521
  Receipt Date: 20100513
  Transmission Date: 20101027
  Serious: Yes (Other)
  Sender: FDA-Public Use
  Company Number: US-PFIZER INC-2010014391

PATIENT
  Sex: Male

DRUGS (10)
  1. LIPITOR [Suspect]
     Dosage: UNK
  2. LIPITOR [Suspect]
     Dosage: 20 MG, 1X/DAY
     Dates: start: 20091102
  3. TEMODAR [Concomitant]
     Dosage: 100 MG, 3 TIMES, 5 DAYS
  4. KEPPRA [Concomitant]
     Dosage: 250, UNK
  5. DILANTIN [Concomitant]
     Dosage: 240, UNK
  6. LAMICTAL [Concomitant]
     Dosage: 60, UNK
  7. ZOLOFT [Concomitant]
     Dosage: 30, UNK
  8. XANAX [Concomitant]
     Dosage: 30, UNK
  9. ACETYLSALICYLIC ACID [Concomitant]
     Dosage: 325 MG, DAILY
     Route: 048
  10. FOLIC ACID [Concomitant]
     Dosage: 1 MG, 1X/DAY

REACTIONS (4)
  - HEMIPARESIS [None]
  - HYPOAESTHESIA [None]
  - MUSCULOSKELETAL DISORDER [None]
  - PARAESTHESIA [None]
